FAERS Safety Report 12245189 (Version 1)
Quarter: 2016Q2

REPORT INFORMATION
  Report Type: Report from Study
  Country: CO (occurrence: CO)
  Receive Date: 20160407
  Receipt Date: 20160407
  Transmission Date: 20160815
  Serious: Yes (Other)
  Sender: FDA-Public Use
  Company Number: CO-ELI_LILLY_AND_COMPANY-CO201603011342

PATIENT
  Age: 51 Year
  Sex: Male
  Weight: 83 kg

DRUGS (2)
  1. CETUXIMAB [Suspect]
     Active Substance: CETUXIMAB
     Indication: COLORECTAL CANCER METASTATIC
     Dosage: 400 MG, OTHER
     Route: 065
     Dates: start: 20151202, end: 20160324
  2. CETUXIMAB [Suspect]
     Active Substance: CETUXIMAB
     Dosage: 400 MG, OTHER
     Route: 065
     Dates: start: 20160324

REACTIONS (5)
  - Rash generalised [Recovering/Resolving]
  - Asthenia [Recovering/Resolving]
  - Off label use [Unknown]
  - Hyperhidrosis [Recovering/Resolving]
  - Erythema [Recovering/Resolving]

NARRATIVE: CASE EVENT DATE: 20151202
